FAERS Safety Report 8273230-9 (Version None)
Quarter: 2012Q2

REPORT INFORMATION
  Report Type: 
  Country: None (occurrence: None)
  Receive Date: 20120411
  Receipt Date: 20120329
  Transmission Date: 20120825
  Serious: Yes (Other)
  Sender: FDA-Public Use
  Company Number: GB-PFIZER INC-2012080207

PATIENT
  Sex: Male

DRUGS (5)
  1. GABAPENTIN [Suspect]
     Dosage: 100 MG, UNK
  2. FLUOXETINE [Suspect]
     Dosage: 20 MG, UNK
  3. PRADAXA [Suspect]
     Indication: CEREBROVASCULAR ACCIDENT PROPHYLAXIS
     Dosage: 110 MG, UNK
  4. ATORVASTATIN [Suspect]
     Dosage: 10 MG, UNK
  5. DIAZEPAM [Suspect]
     Dosage: 5 MG, UNK

REACTIONS (3)
  - INTENTIONAL OVERDOSE [None]
  - SUICIDAL BEHAVIOUR [None]
  - VOMITING [None]
